FAERS Safety Report 10272780 (Version 1)
Quarter: 2014Q2

REPORT INFORMATION
  Report Type: Spontaneous
  Country: DE (occurrence: None)
  Receive Date: 20140627
  Receipt Date: 20140627
  Transmission Date: 20141212
  Serious: Yes (Death)
  Sender: FDA-Public Use
  Company Number: IPC201406-000312

PATIENT
  Age: 24 Year
  Sex: Female

DRUGS (11)
  1. METOCLOPRAMIDE HYDROCHLORIDE [Suspect]
  2. VALPROIC ACID [Suspect]
     Indication: GENERALISED TONIC-CLONIC SEIZURE
  3. LAMOTRIGINE [Suspect]
  4. ASPIRIN [Suspect]
  5. PRIMIDONE [Suspect]
  6. AMOXICILLIN [Suspect]
  7. CLINDAMYCIN [Suspect]
  8. DIPYRONE [Suspect]
  9. PARACETAMOL [Suspect]
  10. DIMENHYDRINATE [Suspect]
  11. ETILEFRINE [Suspect]

REACTIONS (2)
  - Hepatic failure [None]
  - Hepatotoxicity [None]
